FAERS Safety Report 8189166-8 (Version None)
Quarter: 2012Q1

REPORT INFORMATION
  Report Type: 
  Country: None (occurrence: None)
  Receive Date: 20120306
  Receipt Date: 20120306
  Transmission Date: 20120608
  Serious: Yes (Disabling)
  Sender: FDA-Public Use
  Company Number: None

PATIENT
  Sex: Female
  Weight: 68.0396 kg

DRUGS (1)
  1. ZICAM NASAL GEL [Suspect]
     Indication: NASOPHARYNGITIS
     Dosage: USE ONE TIME SNIFF NOSE
     Route: 045
     Dates: start: 20120121

REACTIONS (7)
  - BURNING SENSATION [None]
  - APPLICATION SITE PAIN [None]
  - NASAL DISORDER [None]
  - SWELLING [None]
  - AGEUSIA [None]
  - LACRIMATION INCREASED [None]
  - ANOSMIA [None]
